FAERS Safety Report 23161616 (Version 3)
Quarter: 2023Q4

REPORT INFORMATION
  Report Type: Spontaneous
  Country: US (occurrence: US)
  Receive Date: 20231108
  Receipt Date: 20231209
  Transmission Date: 20240110
  Serious: Yes (Other)
  Sender: FDA-Public Use
  Company Number: US-SANOFI-01824457

PATIENT
  Age: 69 Year
  Sex: Female

DRUGS (1)
  1. LANTUS SOLOSTAR [Suspect]
     Active Substance: INSULIN GLARGINE
     Indication: Type 2 diabetes mellitus
     Dosage: 30 IU, Q12H (30 UNITS IN THE MORNING AND 30 UNITS AT NIGHT)

REACTIONS (3)
  - Cataract [Unknown]
  - Visual impairment [Unknown]
  - Inappropriate schedule of product administration [Unknown]
